FAERS Safety Report 24790109 (Version 1)
Quarter: 2024Q4

REPORT INFORMATION
  Report Type: Spontaneous
  Country: US (occurrence: US)
  Receive Date: 20241230
  Receipt Date: 20241230
  Transmission Date: 20250115
  Serious: Yes (Hospitalization)
  Sender: MYLAN
  Company Number: US-MYLANLABS-2024M1115851

PATIENT
  Age: 12 Year
  Sex: Female

DRUGS (1)
  1. ACETAMINOPHEN [Suspect]
     Active Substance: ACETAMINOPHEN
     Indication: Analgesic therapy
     Dosage: UNK,(EVERY 4?6 H WITH AN AVERAGE DOSING OF 48.5 MG/KG/DAY OVER THE 8 DAYS)
     Route: 065

REACTIONS (1)
  - Pyroglutamic acidosis [Recovering/Resolving]
